FAERS Safety Report 4634932-6 (Version None)
Quarter: 2005Q2

REPORT INFORMATION
  Report Type: 
  Country: None (occurrence: None)
  Receive Date: 20050412
  Receipt Date: 20050401
  Transmission Date: 20051028
  Serious: Yes (Death)
  Sender: FDA-Public Use
  Company Number: A-CH2005-08995

PATIENT
  Age: 7 Year
  Sex: Female

DRUGS (3)
  1. ZAVESCA [Suspect]
     Indication: NIEMANN-PICK DISEASE
     Dosage: 100 MG, BID,ORAL
     Route: 048
     Dates: start: 20050130, end: 20050225
  2. IMODIUM [Concomitant]
  3. ANTIBIOTICS [Concomitant]

REACTIONS (1)
  - INJURY ASPHYXIATION [None]
